FAERS Safety Report 12548297 (Version 2)
Quarter: 2016Q3

REPORT INFORMATION
  Report Type: Report from Study
  Country: US (occurrence: US)
  Receive Date: 20160712
  Receipt Date: 20160801
  Transmission Date: 20161109
  Serious: Yes (Other)
  Sender: FDA-Public Use
  Company Number: US-GILEAD-2016-0222727

PATIENT
  Age: 69 Year
  Sex: Female

DRUGS (3)
  1. AMBRISENTAN [Suspect]
     Active Substance: AMBRISENTAN
     Indication: PRODUCT USED FOR UNKNOWN INDICATION
     Dosage: 10 MG, QD
     Route: 065
     Dates: start: 20160621, end: 20160719
  2. SILDENAFIL. [Concomitant]
     Active Substance: SILDENAFIL
  3. ADCIRCA [Concomitant]
     Active Substance: TADALAFIL

REACTIONS (4)
  - Diabetes mellitus [Unknown]
  - Swelling face [Unknown]
  - Peripheral swelling [Unknown]
  - Drug hypersensitivity [Unknown]
